FAERS Safety Report 8287823-6 (Version None)
Quarter: 2012Q2

REPORT INFORMATION
  Report Type: 
  Country: None (occurrence: None)
  Receive Date: 20120416
  Receipt Date: 20120405
  Transmission Date: 20120825
  Serious: Yes (Hospitalization)
  Sender: FDA-Public Use
  Company Number: US-ASTRAZENECA-2010SE44097

PATIENT
  Age: 94 Year
  Sex: Female

DRUGS (4)
  1. NEXIUM [Suspect]
     Route: 048
     Dates: start: 20060101
  2. PRILOSEC OTC [Suspect]
     Route: 048
  3. ANESTHESIA [Suspect]
     Route: 065
  4. PRILOSEC [Suspect]
     Route: 048

REACTIONS (8)
  - PNEUMONIA [None]
  - ANAESTHETIC COMPLICATION [None]
  - DRUG INEFFECTIVE [None]
  - NASOPHARYNGITIS [None]
  - MALAISE [None]
  - NAUSEA [None]
  - DRUG DOSE OMISSION [None]
  - HIATUS HERNIA [None]
